FAERS Safety Report 9141041 (Version 2)
Quarter: 2013Q2

REPORT INFORMATION
  Report Type: Spontaneous
  Country: US (occurrence: US)
  Receive Date: 20130305
  Receipt Date: 20130510
  Transmission Date: 20140414
  Serious: Yes (Death, Hospitalization)
  Sender: FDA-Public Use
  Company Number: US-B.I. PHARMACEUTICALS,INC./RIDGEFIELD-2013-BI-05471BP

PATIENT
  Age: 75 Year
  Sex: Female
  Weight: 63.5 kg

DRUGS (7)
  1. PRADAXA [Suspect]
     Indication: ATRIAL FIBRILLATION
     Dosage: 300 MG
     Route: 048
     Dates: start: 20120227, end: 20120302
  2. LOSARTAN [Concomitant]
     Dates: start: 2006, end: 2012
  3. PREDNISONE [Concomitant]
     Dates: start: 2006, end: 2012
  4. BONIVA [Concomitant]
     Dates: end: 2012
  5. POTASSIUM CL [Concomitant]
     Dates: end: 2012
  6. NASONEX [Concomitant]
     Dates: start: 2006, end: 2012
  7. PLAVIX [Concomitant]
     Dates: start: 2003, end: 2012

REACTIONS (2)
  - Intracranial pressure increased [Fatal]
  - Cerebrovascular accident [Unknown]
